FAERS Safety Report 20740368 (Version 5)
Quarter: 2022Q2

REPORT INFORMATION
  Report Type: Report from Study
  Country: GB (occurrence: GB)
  Receive Date: 20220422
  Receipt Date: 20220516
  Transmission Date: 20220721
  Serious: Yes (Hospitalization)
  Sender: FDA-Public Use
  Company Number: GB-GLAXOSMITHKLINE-GB2022GSK067338

PATIENT
  Age: 59 Year
  Sex: Male

DRUGS (20)
  1. BELANTAMAB MAFODOTIN [Suspect]
     Active Substance: BELANTAMAB MAFODOTIN
     Indication: Plasma cell myeloma
     Dosage: 1.9 MG/KG, CYC
     Route: 042
     Dates: end: 20220414
  2. BORTEZOMIB [Suspect]
     Active Substance: BORTEZOMIB
     Indication: Plasma cell myeloma
     Dosage: UNK
     Dates: end: 20220414
  3. ACYCLOVIR [Concomitant]
     Active Substance: ACYCLOVIR
     Indication: Prophylaxis
     Dosage: 400 MG, QD
     Route: 048
     Dates: start: 20220111
  4. ALLOPURINOL [Concomitant]
     Active Substance: ALLOPURINOL
     Indication: Prophylaxis
     Dosage: 300 MG, QD
     Route: 048
     Dates: start: 20220111, end: 20220131
  5. CARBOMER [Concomitant]
     Active Substance: CARBOMER
     Indication: Prophylaxis
     Dosage: 1 DROP, Q4H, BOTH EYES
     Route: 047
     Dates: start: 20220111
  6. QUININE SULFATE [Concomitant]
     Active Substance: QUININE SULFATE
     Indication: Restless legs syndrome
     Dosage: 200 MG, QD
     Route: 048
     Dates: start: 20210823
  7. LEVOTHYROXINE [Concomitant]
     Active Substance: LEVOTHYROXINE
     Indication: Hyperthyroidism
     Dosage: 100 MG, QD
     Route: 048
     Dates: start: 20211223
  8. OMEPRAZOLE [Concomitant]
     Active Substance: OMEPRAZOLE
     Indication: Prophylaxis
     Dosage: 20 MG, QD
     Route: 048
     Dates: start: 20210531
  9. OMEPRAZOLE [Concomitant]
     Active Substance: OMEPRAZOLE
     Indication: Diverticulitis
  10. ACETAMINOPHEN [Concomitant]
     Active Substance: ACETAMINOPHEN
     Indication: Ligament sprain
     Dosage: 1000 MG, PRN
     Route: 048
     Dates: start: 20211201
  11. MORPHINE SULFATE [Concomitant]
     Active Substance: MORPHINE SULFATE
     Indication: Ligament sprain
     Dosage: 10 MG, PRN
     Route: 048
     Dates: start: 20211221, end: 20220131
  12. AMOXICILLIN [Concomitant]
     Active Substance: AMOXICILLIN
     Indication: Pneumonia
     Dosage: 500 MG, QD
     Route: 048
     Dates: start: 20220404, end: 20220410
  13. DOXYCYCLINE [Concomitant]
     Active Substance: DOXYCYCLINE
     Indication: Pneumonia
     Dosage: 100 MG, QD
     Route: 048
     Dates: start: 20220405, end: 20220410
  14. DOXYCYCLINE [Concomitant]
     Active Substance: DOXYCYCLINE
     Dosage: 200 MG, QD
     Route: 048
     Dates: start: 20220404, end: 20220405
  15. BISOPROLOL [Concomitant]
     Active Substance: BISOPROLOL
     Indication: Atrial flutter
     Dosage: 2.5 MG, BID
     Route: 048
     Dates: start: 20220411
  16. BISOPROLOL [Concomitant]
     Active Substance: BISOPROLOL
     Indication: Tachycardia
     Dosage: 1.25 MG, QD
     Route: 048
     Dates: start: 20220407, end: 20220410
  17. BISOPROLOL [Concomitant]
     Active Substance: BISOPROLOL
     Dosage: 2.5 MG, BID
     Route: 048
     Dates: start: 20220411, end: 20220419
  18. APIXABAN [Concomitant]
     Active Substance: APIXABAN
     Indication: Product used for unknown indication
     Dosage: 5 MG, BID
     Route: 048
     Dates: start: 20220422
  19. IBUPROFEN GEL [Concomitant]
     Indication: Ligament sprain
     Dosage: 1 FINGERTIP UNIT, AS REQUIRED (PRN)
     Route: 061
     Dates: start: 20211201
  20. DEXAMETHASONE [Suspect]
     Active Substance: DEXAMETHASONE

REACTIONS (1)
  - Hypotension [Recovering/Resolving]

NARRATIVE: CASE EVENT DATE: 20220418
